FAERS Safety Report 5962663-9 (Version None)
Quarter: 2008Q4

REPORT INFORMATION
  Report Type: 
  Country: None (occurrence: None)
  Receive Date: 20081119
  Receipt Date: 20080123
  Transmission Date: 20090506
  Serious: No
  Sender: FDA-Public Use
  Company Number: 2008S1001201

PATIENT
  Age: 51 Year
  Sex: Male

DRUGS (6)
  1. BUSULFAN [Suspect]
     Dosage: 0.75 MG/KG;Q6H;
  2. CYCLOPHOSPHAMIDE [Suspect]
     Dosage: 60 MG/KG;DAILY;
  3. ETOPOSIDE [Suspect]
     Dosage: 10 MG/KG;DAILY;
  4. VINCRISTINE [Concomitant]
  5. DOXORUBICIN HCL [Concomitant]
  6. DEXAMETHASONE 0.5MG TAB [Concomitant]

REACTIONS (1)
  - ALOPECIA [None]
